FAERS Safety Report 8446997-4 (Version None)
Quarter: 2012Q2

REPORT INFORMATION
  Report Type: 
  Country: None (occurrence: None)
  Receive Date: 20120619
  Receipt Date: 20120611
  Transmission Date: 20120825
  Serious: Yes (Other)
  Sender: FDA-Public Use
  Company Number: IT-SANOFI-AVENTIS-2012SA041641

PATIENT
  Age: 74 Year
  Sex: Male

DRUGS (4)
  1. ANTITHROMBOTIC AGENTS [Concomitant]
     Route: 048
     Dates: start: 20120401, end: 20120401
  2. LERCANIDIPINE [Concomitant]
     Indication: ESSENTIAL HYPERTENSION
     Route: 048
     Dates: end: 20120401
  3. ENOXAPARIN SODIUM [Suspect]
     Route: 058
     Dates: start: 20120313, end: 20120401
  4. TELMISARTAN [Concomitant]
     Indication: ESSENTIAL HYPERTENSION
     Dosage: WAS ADMINISTERED AT THE EVENING BEFORE ONSET OF EVENT AND AFTER IN THE MORNING.
     Route: 048

REACTIONS (1)
  - RETINAL ISCHAEMIA [None]
